FAERS Safety Report 11905046 (Version 1)
Quarter: 2016Q1

REPORT INFORMATION
  Report Type: Report from Study
  Country: UG (occurrence: UG)
  Receive Date: 20160109
  Receipt Date: 20160109
  Transmission Date: 20160526
  Serious: Yes (Hospitalization, Other)
  Sender: FDA-Public Use
  Company Number: UG-BRISTOL-MYERS SQUIBB COMPANY-11885548

PATIENT
  Age: 24 Day
  Sex: Female

DRUGS (3)
  1. ZIDOVUDINE. [Suspect]
     Active Substance: ZIDOVUDINE
     Indication: PRODUCT USED FOR UNKNOWN INDICATION
     Dosage: FROM 36 WEEKS GESTATION, THEN Q 3 HRS AT LABOR ONSET UNTIL DELIVERY,THEN 1 WEEK POSTPARTUM
     Route: 064
     Dates: start: 2002, end: 200203
  2. LAMIVUDINE. [Suspect]
     Active Substance: LAMIVUDINE
     Indication: PROPHYLAXIS AGAINST HIV INFECTION
     Dosage: X 30 DAYS THEN 4 MG/KG UNTIL 6 MONTHS OLD
     Route: 048
     Dates: start: 20020305, end: 200209
  3. DIDANOSINE. [Suspect]
     Active Substance: DIDANOSINE
     Indication: PRODUCT USED FOR UNKNOWN INDICATION
     Dosage: FROM GESTATIONAL WEEK 36 UNTIL DELIVERY, THEN FOR 1 WEEK ORALLY POSTPARTUM
     Route: 064

REACTIONS (5)
  - Foetal exposure during pregnancy [Unknown]
  - Meningitis [Recovering/Resolving]
  - Sepsis [Recovered/Resolved]
  - Fontanelle bulging [Unknown]
  - Pneumonia bacterial [Recovering/Resolving]

NARRATIVE: CASE EVENT DATE: 20020329
